FAERS Safety Report 6327698-5 (Version None)
Quarter: 2009Q3

REPORT INFORMATION
  Report Type: 
  Country: None (occurrence: None)
  Receive Date: 20090825
  Receipt Date: 20090813
  Transmission Date: 20100115
  Serious: Yes (Death)
  Sender: FDA-Public Use
  Company Number: US-WYE-H10588709

PATIENT
  Age: 56 Year
  Sex: Male

DRUGS (1)
  1. RELISTOR [Suspect]
     Indication: CONSTIPATION
     Dosage: DOSAGE UNSPECIFIED
     Route: 058

REACTIONS (1)
  - RECTAL HAEMORRHAGE [None]
